FAERS Safety Report 4890626-3 (Version None)
Quarter: 2006Q1

REPORT INFORMATION
  Report Type: 
  Country: None (occurrence: None)
  Receive Date: 20060123
  Receipt Date: 20060109
  Transmission Date: 20060701
  Serious: Yes (Disabling, Other)
  Sender: FDA-Public Use
  Company Number: US200512002029

PATIENT
  Age: 84 Year
  Sex: Female

DRUGS (16)
  1. FORTEO [Suspect]
     Indication: OSTEOPOROSIS
     Dates: start: 20050901
  2. FORTEO [Concomitant]
  3. PREDNISONE [Concomitant]
  4. AMLODIPINE BESYLATE [Concomitant]
  5. NEXIUM [Concomitant]
  6. CONJUGATED ESTROGENS [Concomitant]
  7. FLUOXETINE HCL [Concomitant]
  8. THYROID TAB [Concomitant]
  9. REGLAN /USA/ (METOCLOPRAMIDE HYDROCHLORIDE) [Concomitant]
  10. TOPROL-XL [Concomitant]
  11. OXYCODONE (OXYCODONE) [Concomitant]
  12. POTASSIUM CHLORIDE [Concomitant]
  13. WARFARIN SODIUM [Concomitant]
  14. BUMEX [Concomitant]
  15. ZOMAX (ZOMEPIRAC SODIUM) [Concomitant]
  16. FORTEO [Concomitant]

REACTIONS (3)
  - COMPRESSION FRACTURE [None]
  - DYSSTASIA [None]
  - IMPAIRED SELF-CARE [None]
